FAERS Safety Report 9717525 (Version 1)
Quarter: 2013Q4

REPORT INFORMATION
  Report Type: Spontaneous
  Country: US (occurrence: US)
  Receive Date: 20131127
  Receipt Date: 20131127
  Transmission Date: 20140711
  Serious: No
  Sender: FDA-Public Use
  Company Number: US-GILEAD-2009-0020560

PATIENT
  Age: 77 Year
  Sex: Male
  Weight: 99.79 kg

DRUGS (8)
  1. LETAIRIS [Suspect]
     Indication: PULMONARY ARTERIAL HYPERTENSION
  2. LISINOPRIL [Concomitant]
  3. IMDUR [Concomitant]
  4. K-DUR [Concomitant]
  5. ZOCOR [Concomitant]
  6. SPIRIVA [Concomitant]
  7. ADVAIR DISKUS [Concomitant]
  8. CETIRIZINE [Concomitant]

REACTIONS (2)
  - Dry mouth [Not Recovered/Not Resolved]
  - Local swelling [Not Recovered/Not Resolved]
